FAERS Safety Report 8248536-X (Version None)
Quarter: 2012Q1

REPORT INFORMATION
  Report Type: 
  Country: None (occurrence: None)
  Receive Date: 20120330
  Receipt Date: 20120322
  Transmission Date: 20120608
  Serious: Yes (Other)
  Sender: FDA-Public Use
  Company Number: GB-ASTRAZENECA-2012SE17887

PATIENT
  Age: 65 Year
  Sex: Female

DRUGS (3)
  1. BRILIQUE [Suspect]
     Indication: ANTIPLATELET THERAPY
     Route: 048
  2. ASPIRIN [Concomitant]
     Indication: ANTIPLATELET THERAPY
  3. CLOPIDOGREL [Suspect]
     Indication: ANTIPLATELET THERAPY
     Route: 065

REACTIONS (1)
  - POLYARTHRITIS [None]
